FAERS Safety Report 7950538-5 (Version None)
Quarter: 2011Q4

REPORT INFORMATION
  Report Type: 
  Country: None (occurrence: None)
  Receive Date: 20111130
  Receipt Date: 20111128
  Transmission Date: 20120403
  Serious: Yes (Life-Threatening, Hospitalization, Other)
  Sender: FDA-Public Use
  Company Number: GXKR2011DE003329

PATIENT
  Age: 77 Year
  Sex: Male
  Weight: 79 kg

DRUGS (8)
  1. METOPROLOL SUCCINATE [Concomitant]
     Indication: HYPERTENSION
     Dosage: 47.5 MG, BID
     Route: 048
     Dates: start: 20030101, end: 20110727
  2. PLAVIX [Concomitant]
     Dosage: 75 MG, QD
     Route: 048
     Dates: start: 20030101, end: 20110727
  3. JANUMET [Concomitant]
     Indication: TYPE 2 DIABETES MELLITUS
     Dosage: 1 DF, QD
     Route: 048
     Dates: start: 20110601, end: 20110727
  4. ENALAPRIL 1A PHARMA [Suspect]
     Indication: HYPERTENSION
     Dosage: 10 MG, BID
     Route: 048
     Dates: start: 20040101, end: 20110727
  5. FUROSEMIDE [Concomitant]
     Dosage: 40 MG, QD
     Route: 048
     Dates: start: 20100420, end: 20110727
  6. SPIRO COMP. [Suspect]
     Dosage: 1 DF, QD
     Route: 048
     Dates: start: 20100420, end: 20110427
  7. ACETYLSALICYLIC ACID SRT [Concomitant]
     Dosage: 100 MG, QD
     Route: 048
     Dates: start: 20030101, end: 20110726
  8. ENALAPRIL MALEATE [Suspect]
     Indication: HYPERTENSION
     Dosage: 10 MG, BID
     Route: 048
     Dates: start: 20040101, end: 20110727

REACTIONS (8)
  - LOSS OF CONSCIOUSNESS [None]
  - DEHYDRATION [None]
  - MUSCULAR WEAKNESS [None]
  - CIRCULATORY COLLAPSE [None]
  - HYPERKALAEMIA [None]
  - RENAL FAILURE ACUTE [None]
  - ASTHENIA [None]
  - DIARRHOEA [None]
